FAERS Safety Report 6288588-X (Version None)
Quarter: 2009Q3

REPORT INFORMATION
  Report Type: 
  Country: None (occurrence: None)
  Receive Date: 20090729
  Receipt Date: 20090715
  Transmission Date: 20100115
  Serious: Yes (Life-Threatening, Hospitalization)
  Sender: FDA-Public Use
  Company Number: CH-JNJFOC-20090604283

PATIENT
  Age: 79 Year
  Sex: Female

DRUGS (13)
  1. DURAGESIC-100 [Suspect]
     Indication: SCIATICA
     Route: 062
  2. DANCOR [Concomitant]
     Route: 048
  3. CALCIUM/D3 [Concomitant]
     Route: 048
  4. PANTOZOL [Concomitant]
     Route: 048
  5. PRAVASTATIN [Concomitant]
     Route: 048
  6. SERESTA [Concomitant]
     Route: 048
  7. REMERON [Concomitant]
     Route: 048
  8. ZYLORIC [Concomitant]
     Route: 048
  9. LYRICA [Concomitant]
     Route: 048
  10. KCL RETARD [Concomitant]
     Route: 048
  11. SERETIDE [Concomitant]
     Route: 048
  12. ENOXAPARIN SODIUM [Concomitant]
     Route: 058
  13. DAFALGAN [Concomitant]
     Route: 048

REACTIONS (3)
  - COMA [None]
  - MIOSIS [None]
  - RESPIRATORY DEPRESSION [None]
